FAERS Safety Report 4496357-6 (Version None)
Quarter: 2004Q4

REPORT INFORMATION
  Report Type: 
  Country: None (occurrence: None)
  Receive Date: 20041104
  Receipt Date: 20041018
  Transmission Date: 20050328
  Serious: Yes (Other)
  Sender: FDA-Public Use
  Company Number: US014165

PATIENT
  Age: 19 Month
  Sex: Female

DRUGS (1)
  1. ACTIQ [Suspect]
     Dosage: 1600 UG ONCE BUCCAL
     Route: 002
     Dates: start: 20041018, end: 20041018

REACTIONS (7)
  - ACCIDENTAL EXPOSURE [None]
  - INFLUENZA [None]
  - LETHARGY [None]
  - MALAISE [None]
  - NAUSEA [None]
  - SOMNOLENCE [None]
  - VOMITING [None]
